FAERS Safety Report 10814185 (Version 1)
Quarter: 2015Q1

REPORT INFORMATION
  Report Type: Report from Study
  Country: US (occurrence: US)
  Receive Date: 20150218
  Receipt Date: 20150218
  Transmission Date: 20150721
  Serious: No
  Sender: FDA-Public Use
  Company Number: US-ABBVIE-14K-163-1281612-00

PATIENT
  Sex: Female

DRUGS (4)
  1. HUMIRA [Suspect]
     Active Substance: ADALIMUMAB
  2. AZATHIOPRINE. [Concomitant]
     Active Substance: AZATHIOPRINE
     Indication: PRODUCT USED FOR UNKNOWN INDICATION
     Dosage: ONCE DAILY SIX DAYS A WEEK
  3. HUMIRA [Suspect]
     Active Substance: ADALIMUMAB
     Dates: start: 20140822, end: 20140822
  4. HUMIRA [Suspect]
     Active Substance: ADALIMUMAB
     Indication: CROHN^S DISEASE
     Dates: start: 20140808, end: 20140808

REACTIONS (3)
  - Tendonitis [Recovering/Resolving]
  - Pain in extremity [Not Recovered/Not Resolved]
  - Foot deformity [Recovering/Resolving]

NARRATIVE: CASE EVENT DATE: 2014
